FAERS Safety Report 8929398 (Version 1)
Quarter: 2012Q4

REPORT INFORMATION
  Report Type: 
  Country: US (occurrence: US)
  Receive Date: 20121127
  Receipt Date: 20121127
  Transmission Date: 20130627
  Serious: Yes (Hospitalization)
  Sender: FDA-Public Use
  Company Number: US-B.I. PHARMACEUTICALS,INC./RIDGEFIELD-2012-BI-01110BP

PATIENT
  Sex: Female

DRUGS (8)
  1. PRADAXA [Suspect]
     Indication: ATRIAL FIBRILLATION
     Dosage: 300 mg
     Route: 048
     Dates: start: 201007, end: 201207
  2. PRADAXA [Suspect]
     Dosage: 150 mg
     Route: 048
     Dates: start: 201207, end: 20121005
  3. PRADAXA [Suspect]
     Dosage: 150 mg
     Route: 048
     Dates: start: 20121019
  4. METOPROLOL XR [Concomitant]
     Indication: CARDIAC DISORDER
     Dosage: 25 mg
     Route: 048
  5. FLECANIDE [Concomitant]
     Indication: ARRHYTHMIA
     Dosage: 100 mg
     Route: 048
     Dates: start: 201007
  6. HYDROCHLOROTHIAZIDE [Concomitant]
     Indication: HYPERTENSION
     Dosage: 25 mg
     Route: 048
     Dates: start: 2010
  7. PREVACID [Concomitant]
     Indication: GASTROOESOPHAGEAL REFLUX DISEASE
     Dosage: 30 mg
     Route: 048
     Dates: start: 2002
  8. LOSARTAN [Concomitant]
     Indication: HYPERTENSION
     Dosage: 75 mg
     Route: 048
     Dates: start: 2008

REACTIONS (2)
  - Haemoptysis [Recovered/Resolved]
  - Bronchitis [Recovered/Resolved]
